FAERS Safety Report 10599642 (Version 3)
Quarter: 2014Q4

REPORT INFORMATION
  Report Type: Spontaneous
  Country: JP (occurrence: JP)
  Receive Date: 20141121
  Receipt Date: 20141231
  Transmission Date: 20150529
  Serious: No
  Sender: FDA-Public Use
  Company Number: PHHY2014JP130150

PATIENT
  Age: 75 Year
  Sex: Female

DRUGS (3)
  1. EXFORGE [Suspect]
     Active Substance: AMLODIPINE BESYLATE\VALSARTAN
     Indication: HYPERTENSION
     Dosage: 1 DF, DAILY
     Route: 048
     Dates: start: 20140602
  2. ZESULAN [Concomitant]
     Active Substance: MEQUITAZINE
     Indication: ASTHMA
     Route: 048
  3. CERCINE [Concomitant]
     Active Substance: DIAZEPAM
     Indication: INSOMNIA
     Route: 065

REACTIONS (2)
  - Abnormal behaviour [Recovered/Resolved]
  - Middle insomnia [Recovered/Resolved]

NARRATIVE: CASE EVENT DATE: 20140929
